FAERS Safety Report 22323026 (Version 1)
Quarter: 2023Q2

REPORT INFORMATION
  Report Type: Report from Study
  Country: US (occurrence: US)
  Receive Date: 20230516
  Receipt Date: 20230516
  Transmission Date: 20230721
  Serious: No
  Sender: FDA-Public Use
  Company Number: US-002147023-NVSC2023US111190

PATIENT
  Sex: Female

DRUGS (3)
  1. OXALIPLATIN [Suspect]
     Active Substance: OXALIPLATIN
     Indication: Ductal adenocarcinoma of pancreas
     Dosage: UNK, OTHER (EVERY 2 WEEKS FOR FIRST 4 WEEKS OF 6-WEEK CYCLE)
     Route: 065
     Dates: start: 202303, end: 202305
  2. FLUOROURACIL [Suspect]
     Active Substance: FLUOROURACIL
     Indication: Ductal adenocarcinoma of pancreas
     Dosage: UNK UNK, OTHER (EVERY WEEK FOR FIRST 4 WEEKS OF 6-WEEK CYCLE)
     Route: 065
     Dates: start: 202303, end: 202305
  3. LEUCOVORIN [Suspect]
     Active Substance: LEUCOVORIN
     Indication: Product used for unknown indication
     Dosage: UNK (EVERY WEEK FOR FIRST 4 WEEKS OF 6-WEEK CYCLE)
     Route: 065

REACTIONS (1)
  - Drug intolerance [Unknown]
